FAERS Safety Report 23656700 (Version 2)
Quarter: 2024Q2

REPORT INFORMATION
  Report Type: Spontaneous
  Country: US (occurrence: US)
  Receive Date: 20240321
  Receipt Date: 20240401
  Transmission Date: 20240716
  Serious: Yes (Other)
  Sender: FDA-Public Use
  Company Number: US-HORIZON THERAPEUTICS-HZN-2024-003235

PATIENT

DRUGS (3)
  1. TEPEZZA [Suspect]
     Active Substance: TEPROTUMUMAB-TRBW
     Indication: Endocrine ophthalmopathy
     Dosage: 1ST DOSE (UNKNOWN COURSE)
     Route: 065
     Dates: start: 2021
  2. TEPEZZA [Suspect]
     Active Substance: TEPROTUMUMAB-TRBW
     Dosage: 1ST COURSE
     Route: 065
  3. TEPEZZA [Suspect]
     Active Substance: TEPROTUMUMAB-TRBW
     Dosage: 2ND COURSE
     Route: 065

REACTIONS (4)
  - Progressive multifocal leukoencephalopathy [Unknown]
  - Cognitive disorder [Unknown]
  - Motor dysfunction [Unknown]
  - Off label use [Unknown]
